FAERS Safety Report 7416147-1 (Version None)
Quarter: 2011Q2

REPORT INFORMATION
  Report Type: 
  Country: None (occurrence: None)
  Receive Date: 20110414
  Receipt Date: 20101108
  Transmission Date: 20111010
  Serious: Yes (Hospitalization)
  Sender: FDA-Public Use
  Company Number: US-BAYER-200930864NA

PATIENT
  Age: 29 Year
  Sex: Female
  Weight: 97.727 kg

DRUGS (2)
  1. YAZ [Suspect]
     Dosage: 1 DF (DAILY DOSE), QD, ORAL
     Route: 048
     Dates: start: 20080101, end: 20090101
  2. ANTIBIOTICS [Concomitant]

REACTIONS (5)
  - CHOLESTEROSIS [None]
  - PAIN [None]
  - CHOLELITHIASIS [None]
  - CHOLECYSTITIS [None]
  - GASTRITIS [None]
